FAERS Safety Report 5385929-2 (Version None)
Quarter: 2007Q3

REPORT INFORMATION
  Report Type: 
  Country: None (occurrence: None)
  Receive Date: 20070712
  Receipt Date: 20070703
  Transmission Date: 20080115
  Serious: Yes (Hospitalization, Other)
  Sender: FDA-Public Use
  Company Number: SE-ABBOTT-07P-150-0371648-00

PATIENT
  Age: 26 Year
  Sex: Male

DRUGS (7)
  1. HUMIRA [Suspect]
     Indication: CROHN'S DISEASE
     Route: 058
     Dates: start: 20070502
  2. HUMIRA [Suspect]
  3. INFLIXIMAB [Suspect]
     Indication: CROHN'S DISEASE
     Dosage: 3 DOSES ADMINISTERED
     Route: 042
     Dates: start: 20061001, end: 20070319
  4. INFLIXIMAB [Suspect]
     Dosage: 2 DOSES ADMINISTERED
     Route: 042
     Dates: start: 20020901
  5. UNKNOWN MEDICATION [Concomitant]
     Indication: DRUG USE FOR UNKNOWN INDICATION
  6. MIRTAZAPINE [Concomitant]
     Indication: DRUG USE FOR UNKNOWN INDICATION
  7. AZATHIOPRINE [Concomitant]
     Indication: DRUG USE FOR UNKNOWN INDICATION

REACTIONS (3)
  - DEMYELINATION [None]
  - HYPOAESTHESIA [None]
  - MULTIPLE SCLEROSIS [None]
